FAERS Safety Report 5494035-8 (Version None)
Quarter: 2007Q4

REPORT INFORMATION
  Report Type: 
  Country: None (occurrence: None)
  Receive Date: 20071022
  Receipt Date: 20071017
  Transmission Date: 20080405
  Serious: Yes (Death, Hospitalization)
  Sender: FDA-Public Use
  Company Number: 163-21880-07081157

PATIENT
  Age: 94 Year
  Sex: Female
  Weight: 85.9 kg

DRUGS (8)
  1. REVLIMID [Suspect]
     Indication: ACUTE MYELOID LEUKAEMIA
     Dosage: 50 MG, QD FOR MAX 28 DAYS, ORAL
     Route: 048
     Dates: start: 20070802, end: 20070806
  2. METOPROLOL TARTRATE [Concomitant]
  3. DIGOXIN [Concomitant]
  4. KLOR-CON [Concomitant]
  5. CALCIUM (CALCIUM) [Concomitant]
  6. MAGNESIUM SULFATE [Concomitant]
  7. CENTRUM (CENTRUM) [Concomitant]
  8. LASIX [Concomitant]

REACTIONS (8)
  - ANAEMIA [None]
  - CARDIAC ARREST [None]
  - CATHETER SITE HAEMORRHAGE [None]
  - PULMONARY OEDEMA [None]
  - REFUSAL OF TREATMENT BY RELATIVE [None]
  - RESPIRATORY DISTRESS [None]
  - RESPIRATORY FAILURE [None]
  - THROMBOCYTOPENIA [None]
